FAERS Safety Report 5194239-8 (Version None)
Quarter: 2006Q4

REPORT INFORMATION
  Report Type: 
  Country: None (occurrence: None)
  Receive Date: 20061228
  Receipt Date: 20061215
  Transmission Date: 20070319
  Serious: Yes (Life-Threatening, Hospitalization)
  Sender: FDA-Public Use
  Company Number: NL-ROXANE LABORATORIES, INC-2006-BP-15064RO

PATIENT
  Age: 46 Year
  Sex: Female

DRUGS (2)
  1. CITALOPRAM HYDROBROMIDE [Suspect]
     Route: 048
  2. SULPIRIDE [Suspect]
     Route: 048

REACTIONS (4)
  - BUNDLE BRANCH BLOCK LEFT [None]
  - DRUG TOXICITY [None]
  - ELECTROCARDIOGRAM QRS COMPLEX PROLONGED [None]
  - GRAND MAL CONVULSION [None]
